FAERS Safety Report 6919784-3 (Version None)
Quarter: 2010Q3

REPORT INFORMATION
  Report Type: 
  Country: None (occurrence: None)
  Receive Date: 20100810
  Receipt Date: 20100810
  Transmission Date: 20110219
  Serious: Yes (Hospitalization)
  Sender: FDA-Public Use
  Company Number: None

PATIENT
  Age: 59 Year
  Sex: Male
  Weight: 81.7 kg

DRUGS (2)
  1. CETUXIMAB [Suspect]
     Indication: LARYNGEAL CANCER RECURRENT
     Dosage: 250 MG/M2 WEEKLY IV BOLUS
     Route: 042
     Dates: start: 20100505, end: 20100519
  2. CISPLATIN [Concomitant]

REACTIONS (2)
  - ASTHENIA [None]
  - DEVICE RELATED INFECTION [None]
